FAERS Safety Report 10229805 (Version 1)
Quarter: 2014Q2

REPORT INFORMATION
  Report Type: Spontaneous
  Country: DE (occurrence: DE)
  Receive Date: 20140611
  Receipt Date: 20140611
  Transmission Date: 20141212
  Serious: Yes (Hospitalization)
  Sender: FDA-Public Use
  Company Number: DE-JNJFOC-20140604472

PATIENT
  Age: 59 Year
  Sex: Female

DRUGS (4)
  1. TRAMAL [Suspect]
     Indication: BACK PAIN
     Dosage: CUMULATIVE DOSE TO FIRST REACTION IS 200MG
     Route: 048
     Dates: start: 20130615, end: 20130618
  2. AMITRIPTYLINE HCL [Interacting]
     Indication: DEPRESSION
     Route: 048
     Dates: end: 20130618
  3. PAROXETINE [Interacting]
     Indication: DEPRESSION
     Route: 048
     Dates: start: 20130623
  4. PAROXETINE [Interacting]
     Indication: DEPRESSION
     Route: 048
     Dates: end: 20130622

REACTIONS (3)
  - Drug interaction [Recovered/Resolved]
  - Delirium [Recovered/Resolved]
  - Drug interaction [Recovered/Resolved]
